FAERS Safety Report 4685206-9 (Version None)
Quarter: 2005Q2

REPORT INFORMATION
  Report Type: 
  Country: None (occurrence: None)
  Receive Date: 20050608
  Receipt Date: 20050527
  Transmission Date: 20051028
  Serious: Yes (Hospitalization)
  Sender: FDA-Public Use
  Company Number: FR-BOEHRINGER INGELHEIM PHARMACEUTICALS, INC.-2005-FF-00370FF

PATIENT
  Age: 76 Year
  Sex: Female
  Weight: 106 kg

DRUGS (3)
  1. MICARDIS HCT [Suspect]
     Indication: ESSENTIAL HYPERTENSION
     Route: 048
     Dates: end: 20050429
  2. RILMENIDINE [Concomitant]
     Indication: ESSENTIAL HYPERTENSION
     Route: 048
     Dates: end: 20050429
  3. OGAST [Concomitant]
     Route: 048
     Dates: end: 20050429

REACTIONS (6)
  - ACUTE RESPIRATORY DISTRESS SYNDROME [None]
  - CONJUNCTIVAL OEDEMA [None]
  - FACE OEDEMA [None]
  - PARAESTHESIA ORAL [None]
  - THYROID NEOPLASM [None]
  - TONGUE OEDEMA [None]
